FAERS Safety Report 11003032 (Version 1)
Quarter: 2015Q2

REPORT INFORMATION
  Report Type: Spontaneous
  Country: US (occurrence: US)
  Receive Date: 20150408
  Receipt Date: 20150408
  Transmission Date: 20150821
  Serious: No
  Sender: FDA-Public Use
  Company Number: US-009507513-1504USA002503

PATIENT
  Age: 28 Year
  Sex: Female

DRUGS (4)
  1. CHLORPHENIRAMINE MALEATE. [Concomitant]
     Active Substance: CHLORPHENIRAMINE MALEATE
     Indication: RASH
     Route: 048
  2. CHLORPHENIRAMINE MALEATE. [Concomitant]
     Active Substance: CHLORPHENIRAMINE MALEATE
     Indication: UTERINE SPASM
  3. BETAMETHASONE [Suspect]
     Active Substance: BETAMETHASONE
     Indication: RASH
     Route: 048
  4. BETAMETHASONE [Suspect]
     Active Substance: BETAMETHASONE
     Indication: UTERINE SPASM

REACTIONS (1)
  - Exposure during pregnancy [Recovered/Resolved]
